FAERS Safety Report 5221801-6 (Version None)
Quarter: 2007Q1

REPORT INFORMATION
  Report Type: 
  Country: None (occurrence: None)
  Receive Date: 20070129
  Receipt Date: 20070123
  Transmission Date: 20070707
  Serious: Yes (Hospitalization)
  Sender: FDA-Public Use
  Company Number: US-JNJFOC-20070106355

PATIENT
  Sex: Female

DRUGS (1)
  1. ORTHO EVRA [Suspect]
     Indication: CONTRACEPTION
     Route: 062

REACTIONS (10)
  - DEEP VEIN THROMBOSIS [None]
  - DEHYDRATION [None]
  - EMBOLISM [None]
  - PNEUMONIA [None]
  - RENAL FAILURE ACUTE [None]
  - RETROPHARYNGEAL ABSCESS [None]
  - SEPTIC EMBOLUS [None]
  - STAPHYLOCOCCAL INFECTION [None]
  - TACHYCARDIA [None]
  - TORTICOLLIS [None]
